FAERS Safety Report 7370704-X (Version None)
Quarter: 2011Q1

REPORT INFORMATION
  Report Type: 
  Country: None (occurrence: None)
  Receive Date: 20110323
  Receipt Date: 20110304
  Transmission Date: 20110831
  Serious: No
  Sender: FDA-Public Use
  Company Number: US-BAYER-2011-021404

PATIENT
  Sex: Female

DRUGS (1)
  1. ALEVE (CAPLET) [Suspect]
     Indication: BACK PAIN
     Dosage: DAILY, ONCE
     Route: 048
     Dates: start: 20110302, end: 20110303

REACTIONS (3)
  - PYREXIA [None]
  - ABDOMINAL PAIN UPPER [None]
  - DIZZINESS [None]
